FAERS Safety Report 6840726-3 (Version None)
Quarter: 2010Q3

REPORT INFORMATION
  Report Type: 
  Country: None (occurrence: None)
  Receive Date: 20100714
  Receipt Date: 20100705
  Transmission Date: 20110219
  Serious: Yes (Hospitalization)
  Sender: FDA-Public Use
  Company Number: FR-BAXTER-2010BH018154

PATIENT
  Age: 15 Year
  Sex: Female

DRUGS (2)
  1. HOLOXAN BAXTER [Suspect]
     Indication: BONE SARCOMA
     Route: 042
     Dates: start: 20100121, end: 20100125
  2. ETOPOSIDE GENERIC [Suspect]
     Indication: BONE SARCOMA
     Route: 042
     Dates: start: 20100121, end: 20100124

REACTIONS (3)
  - ENCEPHALOPATHY [None]
  - HYPOKALAEMIA [None]
  - HYPOPHOSPHATAEMIA [None]
